FAERS Safety Report 10133801 (Version 2)
Quarter: 2014Q2

REPORT INFORMATION
  Report Type: Spontaneous
  Country: CN (occurrence: CN)
  Receive Date: 20140428
  Receipt Date: 20140505
  Transmission Date: 20141212
  Serious: Yes (Other)
  Sender: FDA-Public Use
  Company Number: CN-009507513-1404CHN013276

PATIENT
  Age: 63 Year
  Sex: Male
  Weight: 72 kg

DRUGS (1)
  1. ZOCOR [Suspect]
     Indication: HYPERLIPIDAEMIA
     Dosage: 40 MG, QD
     Route: 048
     Dates: start: 20131028, end: 20131031

REACTIONS (1)
  - Hepatic enzyme abnormal [Recovered/Resolved]
